FAERS Safety Report 16208238 (Version 1)
Quarter: 2019Q2

REPORT INFORMATION
  Report Type: Spontaneous
  Country: US (occurrence: US)
  Receive Date: 20190417
  Receipt Date: 20190417
  Transmission Date: 20190711
  Serious: Yes (Other)
  Sender: FDA-Public Use
  Company Number: US-PFIZER INC-2019160206

PATIENT
  Sex: Female
  Weight: 34.2 kg

DRUGS (2)
  1. CHANTIX [Suspect]
     Active Substance: VARENICLINE TARTRATE
     Indication: SMOKING CESSATION THERAPY
     Dosage: 0.5 MG, UNK
     Route: 048
  2. CHANTIX [Suspect]
     Active Substance: VARENICLINE TARTRATE
     Dosage: 1 MG, 2X/DAY
     Route: 048

REACTIONS (8)
  - Underweight [Unknown]
  - Neuropathy peripheral [Unknown]
  - Asthenia [Unknown]
  - Tongue cancer metastatic [Unknown]
  - Bronchitis [Unknown]
  - Chronic obstructive pulmonary disease [Unknown]
  - Squamous cell carcinoma [Unknown]
  - Respiratory gas exchange disorder [Unknown]

NARRATIVE: CASE EVENT DATE: 201807
